FAERS Safety Report 9067118 (Version 2)
Quarter: 2013Q2

REPORT INFORMATION
  Report Type: Spontaneous
  Country: US (occurrence: US)
  Receive Date: 20130214
  Receipt Date: 20130405
  Transmission Date: 20140414
  Serious: No
  Sender: FDA-Public Use
  Company Number: US-009507513-1302USA006422

PATIENT
  Age: 66 Year
  Sex: Male
  Weight: 67 kg

DRUGS (3)
  1. MIRALAX [Suspect]
     Indication: CONSTIPATION
     Dosage: UNK, MONTHLY
     Route: 048
     Dates: start: 201210, end: 201301
  2. MIRALAX [Suspect]
     Indication: MEDICAL OBSERVATION
  3. JANUMET [Concomitant]
     Indication: DIABETES MELLITUS
     Dosage: UNK, UNKNOWN

REACTIONS (2)
  - Drug ineffective [Unknown]
  - Drug effect decreased [Unknown]
